FAERS Safety Report 7526389-2 (Version None)
Quarter: 2011Q2

REPORT INFORMATION
  Report Type: 
  Country: None (occurrence: None)
  Receive Date: 20110603
  Receipt Date: 20110603
  Transmission Date: 20111010
  Serious: No
  Sender: FDA-Public Use
  Company Number: None

PATIENT
  Sex: Male
  Weight: 90.9462 kg

DRUGS (1)
  1. CARVEDILOL [Suspect]
     Indication: CARDIAC FAILURE CONGESTIVE

REACTIONS (3)
  - ERECTILE DYSFUNCTION [None]
  - CHEST PAIN [None]
  - BLOOD PRESSURE INADEQUATELY CONTROLLED [None]
